FAERS Safety Report 23204538 (Version 4)
Quarter: 2023Q4

REPORT INFORMATION
  Report Type: Report from Study
  Country: CA (occurrence: CA)
  Receive Date: 20231120
  Receipt Date: 20231222
  Transmission Date: 20240110
  Serious: Yes (Hospitalization)
  Sender: FDA-Public Use
  Company Number: CA-JNJFOC-20221244889

PATIENT
  Age: 56 Year
  Sex: Male
  Weight: 113 kg

DRUGS (2)
  1. REMICADE [Suspect]
     Active Substance: INFLIXIMAB
     Indication: Crohn^s disease
     Dosage: EXPIRY: 28-FEB-2026
     Route: 041
     Dates: start: 20220325
  2. REMICADE [Suspect]
     Active Substance: INFLIXIMAB
     Dosage: ON 06-NOV-2023, PATIENT RECEIVED 15TH INFLIXIMAB RECOMBINANT INFUSION OF 560 MG.
     Route: 041

REACTIONS (12)
  - Myocardial infarction [Unknown]
  - Asthenia [Recovering/Resolving]
  - Proctalgia [Recovered/Resolved]
  - Pain in extremity [Not Recovered/Not Resolved]
  - Pain in extremity [Unknown]
  - Diarrhoea [Not Recovered/Not Resolved]
  - Arthralgia [Unknown]
  - Pain [Unknown]
  - Fatigue [Recovered/Resolved]
  - COVID-19 [Recovered/Resolved]
  - Hypoaesthesia [Unknown]
  - Burning sensation [Unknown]

NARRATIVE: CASE EVENT DATE: 20220101
